FAERS Safety Report 8802778 (Version 1)
Quarter: 2012Q4

REPORT INFORMATION
  Report Type: 
  Country: US (occurrence: US)
  Receive Date: 20120921
  Receipt Date: 20120921
  Transmission Date: 20130627
  Serious: No
  Sender: FDA-Public Use
  Company Number: US-ASTRAZENECA-2012SE71075

PATIENT
  Age: 56 Year
  Sex: Male
  Weight: 89.4 kg

DRUGS (10)
  1. SEROQUEL [Suspect]
     Indication: BIPOLAR DISORDER
     Route: 048
     Dates: start: 2010, end: 201203
  2. SEROQUEL [Suspect]
     Indication: BIPOLAR DISORDER
     Route: 048
     Dates: start: 201205
  3. PRILOSEC [Suspect]
     Indication: DYSPEPSIA
     Route: 048
     Dates: start: 201204
  4. LAMICTAL [Concomitant]
     Indication: DEPRESSION
     Route: 048
     Dates: start: 2008
  5. KLONOPIN [Concomitant]
     Indication: ANXIETY
     Route: 048
  6. DEPAKOTE [Concomitant]
     Indication: BIPOLAR DISORDER
     Route: 048
     Dates: start: 2006
  7. NAPROSYN [Concomitant]
     Indication: INFLAMMATION
     Route: 048
     Dates: start: 2006
  8. ATIVAN [Concomitant]
     Indication: ANXIETY
     Route: 048
     Dates: start: 1980
  9. PLAQUENIL [Concomitant]
     Indication: INFLAMMATION
     Route: 048
     Dates: start: 201205
  10. LEVOXYL [Concomitant]
     Indication: HYPOTHYROIDISM
     Route: 048
     Dates: start: 200803

REACTIONS (4)
  - Autoantibody positive [Unknown]
  - Coeliac disease [Unknown]
  - Erectile dysfunction [Unknown]
  - Weight increased [Unknown]
